FAERS Safety Report 8878825 (Version 1)
Quarter: 2012Q4

REPORT INFORMATION
  Report Type: 
  Country: FR (occurrence: FR)
  Receive Date: 20121026
  Receipt Date: 20121026
  Transmission Date: 20130627
  Serious: Yes (Hospitalization, Other)
  Sender: FDA-Public Use
  Company Number: FR-BRISTOL-MYERS SQUIBB COMPANY-17050923

PATIENT
  Age: 96 Year
  Sex: Female

DRUGS (10)
  1. APROVEL TABS [Suspect]
     Indication: HYPERTENSIVE HEART DISEASE
     Route: 048
  2. KARDEGIC [Suspect]
     Indication: ARRHYTHMIA
     Dosage: 1 df= 1 sachet. Form: Kardegic 160 mg, powder for oral solution in sachet
     Route: 048
  3. LOVENOX [Suspect]
     Indication: THROMBOSIS
     Route: 058
  4. LASILIX [Concomitant]
     Indication: HYPERTENSIVE HEART DISEASE
     Route: 048
  5. DISCOTRINE [Concomitant]
     Indication: HYPERTENSIVE HEART DISEASE
     Route: 062
  6. SEROPLEX [Concomitant]
     Dosage: film-coated tablet
     Route: 048
  7. AUGMENTIN [Concomitant]
     Indication: CHOLECYSTITIS
     Route: 048
     Dates: start: 20120503, end: 20120514
  8. FORLAX [Concomitant]
     Indication: CONSTIPATION
     Route: 048
  9. LEXOMIL [Concomitant]
     Route: 048
  10. INEXIUM [Concomitant]
     Route: 048

REACTIONS (3)
  - Melaena [Recovered/Resolved]
  - Anaemia [Recovered/Resolved]
  - Cholelithiasis [Unknown]
